FAERS Safety Report 17149883 (Version 2)
Quarter: 2019Q4

REPORT INFORMATION
  Report Type: Spontaneous
  Country: RU (occurrence: RU)
  Receive Date: 20191213
  Receipt Date: 20191224
  Transmission Date: 20200122
  Serious: Yes (Hospitalization)
  Sender: FDA-Public Use
  Company Number: NVSC2019RU067085

PATIENT
  Age: 5 Year
  Sex: Male

DRUGS (2)
  1. AMOXICILLIN,CLAVULANIC ACID [Suspect]
     Active Substance: AMOXICILLIN\CLAVULANIC ACID
     Indication: PRODUCT USED FOR UNKNOWN INDICATION
     Dosage: UNK
     Route: 048
  2. RIFAMICYN [Concomitant]
     Active Substance: RIFAMYCIN SODIUM
     Indication: PRODUCT USED FOR UNKNOWN INDICATION
     Dosage: UNK
     Route: 065

REACTIONS (8)
  - Lacrimation increased [Unknown]
  - Facial asymmetry [Unknown]
  - Eye disorder [Unknown]
  - Eye movement disorder [Unknown]
  - Ear pain [Unknown]
  - Lagophthalmos [Unknown]
  - Hypoacusis [Unknown]
  - Paralysis [Unknown]

NARRATIVE: CASE EVENT DATE: 20180504
